FAERS Safety Report 10069902 (Version 1)
Quarter: 2014Q2

REPORT INFORMATION
  Report Type: Spontaneous
  Country: US (occurrence: None)
  Receive Date: 20140409
  Receipt Date: 20140409
  Transmission Date: 20141212
  Serious: No
  Sender: FDA-Public Use
  Company Number: None

PATIENT
  Age: 67 Year
  Sex: Female
  Weight: 74.84 kg

DRUGS (4)
  1. CEFUROXIME [Suspect]
     Indication: PNEUMONIA
     Route: 048
     Dates: end: 20130713
  2. CALCIUM 600 WITH D [Concomitant]
  3. FISH OIL [Concomitant]
  4. 81 ASPIRIN [Concomitant]

REACTIONS (2)
  - Vulvovaginal pain [None]
  - Urinary tract infection [None]
